FAERS Safety Report 4531909-6 (Version None)
Quarter: 2004Q4

REPORT INFORMATION
  Report Type: 
  Country: None (occurrence: None)
  Receive Date: 20041216
  Receipt Date: 20041130
  Transmission Date: 20050328
  Serious: Yes (Hospitalization)
  Sender: FDA-Public Use
  Company Number: 2004-BP-12563BP

PATIENT
  Age: 56 Year
  Sex: Female

DRUGS (5)
  1. MIRAPEX [Suspect]
     Indication: RESTLESS LEGS SYNDROME
     Dosage: PO (THERAPY DATES: ABOUT ONE YEAR AGO - NR)
     Route: 048
  2. METFORMIN HCL [Suspect]
  3. ESTROGEN [Suspect]
  4. ZANAFLEX [Suspect]
  5. REBIF [Suspect]

REACTIONS (5)
  - CHROMATURIA [None]
  - DIARRHOEA [None]
  - JAUNDICE [None]
  - NAUSEA [None]
  - VOMITING [None]
